FAERS Safety Report 14098836 (Version 1)
Quarter: 2017Q4

REPORT INFORMATION
  Report Type: Spontaneous
  Country: JP (occurrence: JP)
  Receive Date: 20171017
  Receipt Date: 20171017
  Transmission Date: 20180321
  Serious: Yes (Death)
  Sender: FDA-Public Use
  Company Number: PHHY2017JP152051

PATIENT
  Age: 54 Year
  Sex: Female

DRUGS (8)
  1. PROCARBAZINE [Suspect]
     Active Substance: PROCARBAZINE
     Indication: OCULAR LYMPHOMA
     Dosage: 100 MG/M2, QD (GIVEN ON DAYS 2 TO 8 DURING ODD NUMBERED CYCLES)
     Route: 065
  2. CYTARABINE. [Suspect]
     Active Substance: CYTARABINE
     Indication: OCULAR LYMPHOMA
     Dosage: 3 G/M2, UNK (SEPARATED BY 24 H)
     Route: 065
  3. METHOTREXATE. [Suspect]
     Active Substance: METHOTREXATE
     Indication: OCULAR LYMPHOMA
     Dosage: 400 UG/0.1 ML, 8 WEEKLY INJECTIONS
     Route: 031
  4. LEUCOVORIN. [Suspect]
     Active Substance: LEUCOVORIN
     Indication: OCULAR LYMPHOMA
     Dosage: UNK
     Route: 065
  5. VINCRISTINE [Suspect]
     Active Substance: VINCRISTINE
     Indication: OCULAR LYMPHOMA
     Dosage: 1.4 MG/M2, UNK
     Route: 065
  6. METHOTREXATE. [Suspect]
     Active Substance: METHOTREXATE
     Dosage: 400 UG/0.1 ML, 2 MONTHLY INJECTIONS
     Route: 031
  7. RITUXIMAB. [Suspect]
     Active Substance: RITUXIMAB
     Indication: OCULAR LYMPHOMA
     Dosage: 375 MG/M2, UNK
     Route: 065
  8. METHOTREXATE. [Suspect]
     Active Substance: METHOTREXATE
     Dosage: 3.5 G/M2, UNK (DAY 2)
     Route: 065

REACTIONS (2)
  - Meningoencephalitis herpetic [Fatal]
  - Pneumonia aspiration [Fatal]
